FAERS Safety Report 24035142 (Version 1)
Quarter: 2024Q2

REPORT INFORMATION
  Report Type: Spontaneous
  Country: US (occurrence: None)
  Receive Date: 20240628
  Receipt Date: 20240628
  Transmission Date: 20240716
  Serious: Yes (Other)
  Sender: FDA-Public Use
  Company Number: None

PATIENT
  Age: 60 Year
  Sex: Male

DRUGS (1)
  1. STELARA [Suspect]
     Active Substance: USTEKINUMAB
     Indication: Colitis ulcerative
     Dosage: 90MG Q8W SUBCUTANEOUS?
     Route: 058

REACTIONS (4)
  - Dizziness [None]
  - Vision blurred [None]
  - Intracranial mass [None]
  - Dry skin [None]
